FAERS Safety Report 6989045-5 (Version None)
Quarter: 2010Q3

REPORT INFORMATION
  Report Type: 
  Country: None (occurrence: None)
  Receive Date: 20100916
  Receipt Date: 20090911
  Transmission Date: 20110219
  Serious: Yes (Life-Threatening)
  Sender: FDA-Public Use
  Company Number: ES-PFIZER INC-2009247017

PATIENT
  Age: 74 Year
  Sex: Female

DRUGS (4)
  1. LYRICA [Suspect]
     Indication: BACK PAIN
     Dosage: 75 MG, 3X/DAY
     Route: 048
     Dates: start: 20080101, end: 20090131
  2. BROMAZEPAM [Interacting]
     Dosage: UNK MG, 2X/DAY
     Route: 048
     Dates: start: 20080101, end: 20090131
  3. TRAMADOL [Interacting]
     Indication: BACK PAIN
     Dosage: UNK
     Route: 048
     Dates: start: 20080101, end: 20090131
  4. DURAGESIC-100 [Interacting]
     Dosage: 25MCG/H; 2 PER WEEK
     Route: 062
     Dates: start: 20080101, end: 20090131

REACTIONS (3)
  - DRUG INTERACTION [None]
  - RESPIRATORY FAILURE [None]
  - SOPOR [None]
